FAERS Safety Report 10672348 (Version 1)
Quarter: 2014Q4

REPORT INFORMATION
  Report Type: Spontaneous
  Country: US (occurrence: None)
  Receive Date: 20141222
  Receipt Date: 20141222
  Transmission Date: 20150529
  Serious: Yes (Disabling)
  Sender: FDA-Public Use
  Company Number: None

PATIENT
  Age: 21 Year
  Sex: Male

DRUGS (2)
  1. DEXTROAMP-AMPHET ER 20 MG CAPSULES GLOBAL PHA. [Suspect]
     Active Substance: AMPHETAMINE SULFATE\DEXTROAMPHETAMINE
     Dosage: 2 CAPS, IN AM 1 @NOON (=60MG), SEE DOSE, TAKEN BY MOUTH.
     Route: 048
     Dates: start: 20141212, end: 20141221
  2. DEXTROAMP-AMPHET ER 20 MG CAPSULES GLOBAL PHA. [Suspect]
     Active Substance: AMPHETAMINE SULFATE\DEXTROAMPHETAMINE
     Indication: SLEEP DISORDER
     Dosage: 2 CAPS, IN AM 1 @NOON (=60MG), SEE DOSE, TAKEN BY MOUTH.
     Route: 048
     Dates: start: 20141212, end: 20141221

REACTIONS (19)
  - Fatigue [None]
  - Flatulence [None]
  - Disturbance in attention [None]
  - Blepharospasm [None]
  - Poor personal hygiene [None]
  - Memory impairment [None]
  - Headache [None]
  - Eating disorder [None]
  - Lethargy [None]
  - Dry mouth [None]
  - Abdominal pain upper [None]
  - Cognitive disorder [None]
  - Dizziness [None]
  - Hallucination, visual [None]
  - Confusional state [None]
  - Drug ineffective [None]
  - Apathy [None]
  - Feeling abnormal [None]
  - Gastrointestinal pain [None]

NARRATIVE: CASE EVENT DATE: 20141221
